FAERS Safety Report 4443571-1 (Version None)
Quarter: 2004Q3

REPORT INFORMATION
  Report Type: 
  Country: None (occurrence: None)
  Receive Date: 20040903
  Receipt Date: 20040903
  Transmission Date: 20050211
  Serious: Yes (Hospitalization)
  Sender: FDA-Public Use
  Company Number: None

PATIENT
  Age: 61 Year
  Sex: Male

DRUGS (2)
  1. CYTARABINE [Suspect]
     Indication: ACUTE MYELOID LEUKAEMIA
     Dosage: 190 MG CONTINUOUS IV
     Route: 042
     Dates: start: 20040720, end: 20040726
  2. CLOFARABINE (STUDY DRUG) [Suspect]
     Dosage: 58 MG QD IV
     Route: 042
     Dates: start: 20040720, end: 20040725

REACTIONS (2)
  - FEBRILE NEUTROPENIA [None]
  - SYNCOPE [None]
